FAERS Safety Report 24164267 (Version 4)
Quarter: 2024Q4

REPORT INFORMATION
  Report Type: Spontaneous
  Country: CA (occurrence: CA)
  Receive Date: 20240801
  Receipt Date: 20241211
  Transmission Date: 20250114
  Serious: Yes (Hospitalization, Other)
  Sender: PFIZER
  Company Number: CA-PFIZER INC-202400184289

PATIENT
  Age: 79 Year
  Sex: Female

DRUGS (4)
  1. RUXIENCE [Suspect]
     Active Substance: RITUXIMAB-PVVR
     Indication: Rheumatoid arthritis
     Dosage: 1000 MG DAY 1 AND DAY 15
     Route: 042
     Dates: start: 20240503
  2. RUXIENCE [Suspect]
     Active Substance: RITUXIMAB-PVVR
     Dosage: 1000 MG DAY 1 AND DAY 15
     Route: 042
     Dates: start: 20240517
  3. RUXIENCE [Suspect]
     Active Substance: RITUXIMAB-PVVR
     Dosage: 1000 MG, 28 WEEKS (1000 MG, DAY 1 AND DAY 15,EVERY 6 MONTH)
     Route: 042
     Dates: start: 20241202
  4. CETIRIZINE HYDROCHLORIDE [Concomitant]
     Active Substance: CETIRIZINE HYDROCHLORIDE
     Dosage: A REACTINE AT BEDTIME EVERY NIGHT

REACTIONS (11)
  - Pelvic fracture [Recovered/Resolved]
  - Lower respiratory tract infection [Unknown]
  - Vein rupture [Unknown]
  - Joint injury [Unknown]
  - Arthralgia [Unknown]
  - Peripheral swelling [Unknown]
  - Movement disorder [Unknown]
  - Joint swelling [Unknown]
  - Swelling face [Recovering/Resolving]
  - Erythema [Recovering/Resolving]
  - Fall [Unknown]

NARRATIVE: CASE EVENT DATE: 20240101
